FAERS Safety Report 17283484 (Version 13)
Quarter: 2020Q3

REPORT INFORMATION
  Report Type: Report from Study
  Country: IN (occurrence: IN)
  Receive Date: 20200117
  Receipt Date: 20200721
  Transmission Date: 20201102
  Serious: Yes (Other)
  Sender: FDA-Public Use
  Company Number: NVSC2020IN009467

PATIENT
  Age: 28 Year
  Sex: Male
  Weight: 84.3 kg

DRUGS (5)
  1. GALVUS MET [Suspect]
     Active Substance: METFORMIN HYDROCHLORIDE\VILDAGLIPTIN
     Indication: DIABETES MELLITUS
     Dosage: 1 DF, BID (SINCE 3 YEARS) (1?0?1)
     Route: 048
  2. GLYCIPHAGE PG2 [Concomitant]
     Indication: DIABETES MELLITUS
     Dosage: UNK, QD (1?0?1)
     Route: 048
  3. ACTRAPID [Concomitant]
     Active Substance: INSULIN HUMAN
     Indication: DIABETES MELLITUS
     Dosage: 10 OT, TID (10 UNITS 1?1?1)
     Route: 058
  4. LANTUS [Concomitant]
     Active Substance: INSULIN GLARGINE
     Indication: DIABETES MELLITUS
     Dosage: 16 OT (16 UNITS BEFORE BED)
     Route: 058
  5. LANTUS [Concomitant]
     Active Substance: INSULIN GLARGINE
     Dosage: INCREASED BY 1 UNIT
     Route: 065
     Dates: start: 20200419

REACTIONS (14)
  - Overweight [Unknown]
  - Hypoglycaemia [Recovered/Resolved]
  - Syncope [Unknown]
  - Temperature intolerance [Unknown]
  - Pain in extremity [Unknown]
  - Headache [Unknown]
  - Hyperhidrosis [Unknown]
  - Blood glucose decreased [Unknown]
  - Blood glucose increased [Unknown]
  - Hyperglycaemia [Unknown]
  - Disturbance in attention [Unknown]
  - Tremor [Unknown]
  - Nervousness [Unknown]
  - Hypoglycaemia [Recovered/Resolved]

NARRATIVE: CASE EVENT DATE: 20191019
